FAERS Safety Report 24810482 (Version 3)
Quarter: 2025Q4

REPORT INFORMATION
  Report Type: Report from Study
  Country: CA (occurrence: CA)
  Receive Date: 20250106
  Receipt Date: 20251003
  Transmission Date: 20260118
  Serious: Yes (Other)
  Sender: TAKEDA
  Company Number: CA-TAKEDA-2022TUS020194

PATIENT
  Age: 48 Year
  Sex: Female

DRUGS (3)
  1. VEDOLIZUMAB [Suspect]
     Active Substance: VEDOLIZUMAB
     Indication: Colitis ulcerative
     Dosage: 300 MILLIGRAM
  2. VEDOLIZUMAB [Suspect]
     Active Substance: VEDOLIZUMAB
     Dosage: 300 MILLIGRAM
  3. IMURAN [Concomitant]
     Active Substance: AZATHIOPRINE
     Dosage: 200 MILLIGRAM

REACTIONS (7)
  - Colitis ulcerative [Unknown]
  - Diarrhoea [Unknown]
  - Abnormal faeces [Unknown]
  - Flank pain [Unknown]
  - Dyschezia [Unknown]
  - Abdominal pain [Unknown]
  - Constipation [Unknown]
